FAERS Safety Report 17716910 (Version 1)
Quarter: 2020Q2

REPORT INFORMATION
  Report Type: Spontaneous
  Country: DE (occurrence: DE)
  Receive Date: 20200428
  Receipt Date: 20200428
  Transmission Date: 20200714
  Serious: Yes (Other)
  Sender: FDA-Public Use
  Company Number: DE-009507513-2004DEU006373

PATIENT
  Age: 26 Year
  Sex: Female
  Weight: 60 kg

DRUGS (1)
  1. NUVARING [Suspect]
     Active Substance: ETHINYL ESTRADIOL\ETONOGESTREL
     Indication: CONTRACEPTION
     Dosage: UNK
     Dates: end: 20200323

REACTIONS (5)
  - Asthenia [Unknown]
  - Migraine [Unknown]
  - Impaired quality of life [Unknown]
  - Suicidal ideation [Unknown]
  - Vomiting [Unknown]
